FAERS Safety Report 17965591 (Version 1)
Quarter: 2020Q2

REPORT INFORMATION
  Report Type: Spontaneous
  Country: US (occurrence: US)
  Receive Date: 20200630
  Receipt Date: 20200630
  Transmission Date: 20200714
  Serious: Yes (Other)
  Sender: FDA-Public Use
  Company Number: US-BAUSCH-BL-2020-018052

PATIENT
  Age: 69 Year
  Sex: Female

DRUGS (4)
  1. LINZESS [Concomitant]
     Active Substance: LINACLOTIDE
     Indication: PRODUCT USED FOR UNKNOWN INDICATION
     Route: 065
  2. TRULANCE [Suspect]
     Active Substance: PLECANATIDE
     Indication: PRODUCT USE IN UNAPPROVED INDICATION
     Dosage: SOMETIME LAST WEEK, STARTED TAKING AN ADDITIONAL HALF-TABLET AFTER HER USUAL DOSAGE (DOSE INCREASED)
     Route: 048
     Dates: start: 202006
  3. HYOSCYAMINE. [Concomitant]
     Active Substance: HYOSCYAMINE
     Indication: PRODUCT USED FOR UNKNOWN INDICATION
     Route: 065
  4. TRULANCE [Suspect]
     Active Substance: PLECANATIDE
     Indication: MUSCLE SPASMS
     Route: 048
     Dates: end: 202006

REACTIONS (6)
  - Pelvic floor repair [Not Recovered/Not Resolved]
  - Product use in unapproved indication [Unknown]
  - Therapeutic product effect incomplete [Unknown]
  - Constipation [Recovering/Resolving]
  - Nerve injury [Not Recovered/Not Resolved]
  - Extra dose administered [Unknown]

NARRATIVE: CASE EVENT DATE: 2020
